FAERS Safety Report 4590373-1 (Version None)
Quarter: 2005Q1

REPORT INFORMATION
  Report Type: 
  Country: None (occurrence: None)
  Receive Date: 20050217
  Receipt Date: 20050209
  Transmission Date: 20050727
  Serious: No
  Sender: FDA-Public Use
  Company Number: 2004UW25899

PATIENT
  Age: 66 Year
  Sex: Female
  Weight: 78.4723 kg

DRUGS (2)
  1. CRESTOR [Suspect]
     Dosage: 10 MG DAILY PO
     Route: 048
     Dates: start: 20041004, end: 20041110
  2. SYNTHROID [Concomitant]

REACTIONS (4)
  - MEAN PLATELET VOLUME INCREASED [None]
  - MYALGIA [None]
  - PHLEBOTHROMBOSIS [None]
  - PLASMINOGEN INCREASED [None]
